FAERS Safety Report 7402703-3 (Version None)
Quarter: 2011Q2

REPORT INFORMATION
  Report Type: 
  Country: None (occurrence: None)
  Receive Date: 20110408
  Receipt Date: 20110405
  Transmission Date: 20111010
  Serious: No
  Sender: FDA-Public Use
  Company Number: US-TEVA-275195USA

PATIENT
  Sex: Female
  Weight: 72.64 kg

DRUGS (2)
  1. PLAN B ONE-STEP [Suspect]
     Indication: POST COITAL CONTRACEPTION
     Route: 048
     Dates: start: 20110403, end: 20110403
  2. LEVONORGESTREL [Suspect]
     Indication: POST COITAL CONTRACEPTION
     Route: 048
     Dates: start: 20110401, end: 20110401

REACTIONS (4)
  - PAIN IN EXTREMITY [None]
  - HEADACHE [None]
  - DIZZINESS [None]
  - MENSTRUATION IRREGULAR [None]
